FAERS Safety Report 11003997 (Version 1)
Quarter: 2015Q2

REPORT INFORMATION
  Report Type: Spontaneous
  Country: DE (occurrence: DE)
  Receive Date: 20150409
  Receipt Date: 20150409
  Transmission Date: 20150821
  Serious: Yes (Other)
  Sender: FDA-Public Use
  Company Number: DE-009507513-1503DEU014709

PATIENT
  Age: 54 Year
  Sex: Female

DRUGS (2)
  1. IMPLANON [Suspect]
     Active Substance: ETONOGESTREL
     Dosage: UNK
     Dates: start: 2007
  2. IMPLANON [Suspect]
     Active Substance: ETONOGESTREL
     Dosage: IN THE LEFT ARM IN THE SAME INSERTION CHANNEL AS THE PREVIOUS IMPLANT
     Dates: end: 20150326

REACTIONS (5)
  - Medical device complication [Recovered/Resolved]
  - Surgery [Unknown]
  - Neurological symptom [Unknown]
  - Device deployment issue [Recovered/Resolved]
  - Pain in extremity [Unknown]

NARRATIVE: CASE EVENT DATE: 20150320
